FAERS Safety Report 8022143-6 (Version None)
Quarter: 2012Q1

REPORT INFORMATION
  Report Type: 
  Country: None (occurrence: None)
  Receive Date: 20120104
  Receipt Date: 20111223
  Transmission Date: 20120608
  Serious: Yes (Life-Threatening, Hospitalization, Other)
  Sender: FDA-Public Use
  Company Number: GB-JNJFOC-20110701562

PATIENT
  Sex: Male
  Weight: 37.5 kg

DRUGS (13)
  1. ACETAMINOPHEN [Concomitant]
  2. VANCOMYCIN [Concomitant]
  3. CODEINE PHOSPHATE [Concomitant]
  4. FLUCONAZOLE [Concomitant]
  5. OMEPRAZOLE [Concomitant]
  6. AMOXICILLIN [Concomitant]
  7. REMICADE [Suspect]
     Indication: CROHN'S DISEASE
     Route: 042
     Dates: start: 20110203, end: 20110913
  8. AZATHIOPRINE [Suspect]
     Indication: PRODUCT USED FOR UNKNOWN INDICATION
  9. GENTAMICIN [Concomitant]
  10. METRONIDAZOLE [Concomitant]
  11. PIPERACILLIN AND TAZOBACTAM [Concomitant]
  12. OCTREOTIDE ACETATE [Concomitant]
  13. PENICILLIN [Concomitant]

REACTIONS (7)
  - ABDOMINAL COMPARTMENT SYNDROME [None]
  - SHOCK [None]
  - RESPIRATORY FAILURE [None]
  - ILEAL STENOSIS [None]
  - INTESTINAL OBSTRUCTION [None]
  - NASOGASTRIC OUTPUT HIGH [None]
  - ASCITES [None]
